FAERS Safety Report 15730064 (Version 1)
Quarter: 2018Q4

REPORT INFORMATION
  Report Type: Spontaneous
  Country: AU (occurrence: AU)
  Receive Date: 20181217
  Receipt Date: 20181217
  Transmission Date: 20190205
  Serious: Yes (Hospitalization)
  Sender: FDA-Public Use
  Company Number: AU-BAXTER-2018BAX030121

PATIENT
  Age: 79 Year

DRUGS (3)
  1. CURCUMIN [Suspect]
     Active Substance: CURCUMIN
     Indication: PRODUCT USED FOR UNKNOWN INDICATION
     Dosage: IMX-110-001 0.8 MG/ML ALONG WITH DOXORUBICIN
     Route: 042
     Dates: start: 20181026
  2. 5% GLUCOSE 500MLINTRAVENOUS INFUSION (AH6E0063) [Suspect]
     Active Substance: DEXTROSE
     Indication: MEDICATION DILUTION
     Dosage: COMPOUNDED WITH IMX-110 (DOXORUBICIN ALONG-WITH CURCUMIN)
     Route: 042
     Dates: start: 20181026
  3. DOXORUBICIN [Suspect]
     Active Substance: DOXORUBICIN
     Indication: PRODUCT USED FOR UNKNOWN INDICATION
     Dosage: IMX-110-001 0.8 MG/ML ALONG-WITH CURCUMIN
     Route: 042
     Dates: start: 20181026

REACTIONS (2)
  - Pain in extremity [Unknown]
  - Pyrexia [Unknown]

NARRATIVE: CASE EVENT DATE: 20181113
